FAERS Safety Report 19457875 (Version 2)
Quarter: 2021Q2

REPORT INFORMATION
  Report Type: Spontaneous
  Country: PL (occurrence: PL)
  Receive Date: 20210624
  Receipt Date: 20210625
  Transmission Date: 20210717
  Serious: Yes (Hospitalization)
  Sender: FDA-Public Use
  Company Number: PL-TEVA-2021-PL-1924594

PATIENT
  Age: 6 Year
  Sex: Male

DRUGS (13)
  1. CICLOSPORIN [Suspect]
     Active Substance: CYCLOSPORINE
     Indication: HAEMOPHAGOCYTIC LYMPHOHISTIOCYTOSIS
     Route: 065
     Dates: start: 201803
  2. DEXAMETHASONE. [Suspect]
     Active Substance: DEXAMETHASONE
     Indication: DISEASE RECURRENCE
  3. CICLOSPORIN [Suspect]
     Active Substance: CYCLOSPORINE
     Indication: ACUTE GRAFT VERSUS HOST DISEASE
     Route: 065
     Dates: start: 2019, end: 2019
  4. CYCLOPHOSPHAMIDE. [Suspect]
     Active Substance: CYCLOPHOSPHAMIDE
     Indication: BONE MARROW CONDITIONING REGIMEN
     Route: 065
     Dates: start: 2019, end: 2019
  5. METHYLPREDNISOLONE. [Suspect]
     Active Substance: METHYLPREDNISOLONE
     Indication: ACUTE GRAFT VERSUS HOST DISEASE
     Dosage: 2 MG/KG DAILY;
     Route: 065
     Dates: start: 2019, end: 2019
  6. TREOSULFAN [Concomitant]
     Active Substance: TREOSULFAN
     Indication: BONE MARROW CONDITIONING REGIMEN
     Dosage: 42G/M2
     Route: 065
     Dates: start: 2019, end: 2019
  7. IMMUNOGLOBULIN IV [Suspect]
     Active Substance: HUMAN IMMUNOGLOBULIN G
     Indication: IMMUNE THROMBOCYTOPENIA
     Route: 042
     Dates: start: 201908
  8. CICLOSPORIN [Suspect]
     Active Substance: CYCLOSPORINE
     Indication: PROPHYLAXIS AGAINST GRAFT VERSUS HOST DISEASE
     Route: 065
     Dates: start: 2019, end: 2019
  9. METHOTREXATE. [Suspect]
     Active Substance: METHOTREXATE
     Indication: PROPHYLAXIS AGAINST GRAFT VERSUS HOST DISEASE
     Route: 065
     Dates: start: 2019, end: 2019
  10. ETOPOSIDE. [Suspect]
     Active Substance: ETOPOSIDE
     Indication: DISEASE RECURRENCE
  11. ANTI?THYMOCYTE GLOBULIN (RABBIT) NOS [Suspect]
     Active Substance: LAPINE T-LYMPHOCYTE IMMUNE GLOBULIN
     Indication: PROPHYLAXIS AGAINST GRAFT VERSUS HOST DISEASE
     Dosage: TOTAL
     Route: 065
     Dates: start: 2019, end: 2019
  12. ETOPOSIDE. [Suspect]
     Active Substance: ETOPOSIDE
     Indication: HAEMOPHAGOCYTIC LYMPHOHISTIOCYTOSIS
     Dosage: RECEIVED FEW DOSES OF ETOPOSIDE RELAPSE OF HLH
     Route: 065
     Dates: start: 201803
  13. DEXAMETHASONE. [Suspect]
     Active Substance: DEXAMETHASONE
     Indication: HAEMOPHAGOCYTIC LYMPHOHISTIOCYTOSIS
     Dosage: RECEIVED FULL DOSE OF DEXAMETHASONE ON RELAPSE OF HLH
     Route: 065
     Dates: start: 201803

REACTIONS (9)
  - Respiratory failure [Unknown]
  - Cytomegalovirus infection reactivation [Recovered/Resolved]
  - Epstein-Barr virus infection reactivation [Recovered/Resolved]
  - Haemophagocytic lymphohistiocytosis [Recovering/Resolving]
  - Disease recurrence [Recovering/Resolving]
  - Hepatic failure [Unknown]
  - Drug ineffective [Unknown]
  - BK virus infection [Recovered/Resolved]
  - Cytomegalovirus viraemia [Recovered/Resolved]

NARRATIVE: CASE EVENT DATE: 2018
